FAERS Safety Report 5597976-6 (Version None)
Quarter: 2008Q1

REPORT INFORMATION
  Report Type: 
  Country: None (occurrence: None)
  Receive Date: 20080122
  Receipt Date: 20080114
  Transmission Date: 20080703
  Serious: Yes (Death, Hospitalization, Other)
  Sender: FDA-Public Use
  Company Number: CA-JNJFOC-20071107421

PATIENT
  Sex: Female
  Weight: 49.9 kg

DRUGS (9)
  1. REMICADE [Suspect]
     Dosage: 29 INFUSIONS
     Route: 042
  2. REMICADE [Suspect]
     Indication: RHEUMATOID ARTHRITIS
     Dosage: 29 INFUSIONS
     Route: 042
  3. APO-FOLIC [Concomitant]
  4. COUMADIN [Concomitant]
     Dosage: 1 MG HS OR ACCORDING TO INR, 2.5 MG HS OR ACCORDING TO INR ,5 MG HS OR ACCORDING TO INR
  5. METHOTREXATE [Concomitant]
     Dosage: 2.5 MG(10 TABLETS) ONCE WEEKLY
     Route: 048
  6. APO-HYDOXYQUINE [Concomitant]
  7. PREDNISONE [Concomitant]
  8. DIDROCAL [Concomitant]
     Dosage: 400-500 MG
  9. D-TABS [Concomitant]
     Dosage: 10000 UI WEEKLY

REACTIONS (3)
  - DEATH [None]
  - NEOPLASM [None]
  - OEDEMA PERIPHERAL [None]
